FAERS Safety Report 7051410-8 (Version None)
Quarter: 2010Q4

REPORT INFORMATION
  Report Type: 
  Country: None (occurrence: None)
  Receive Date: 20101019
  Receipt Date: 20101011
  Transmission Date: 20110411
  Serious: Yes (Hospitalization, Congenital Anomaly)
  Sender: FDA-Public Use
  Company Number: A0687284A

PATIENT
  Sex: Female
  Weight: 2.7 kg

DRUGS (11)
  1. PAXIL CR [Suspect]
     Indication: ANXIETY
     Dosage: 25MG PER DAY
     Dates: end: 20070301
  2. PAXIL [Suspect]
     Indication: ANXIETY
     Dosage: 20MG PER DAY
     Dates: start: 20011001
  3. ANTIHYPERTENSIVE [Concomitant]
  4. ZOFRAN [Concomitant]
  5. PROCARDIA [Concomitant]
  6. PRENATAL VITAMINS [Concomitant]
  7. TYLENOL-500 [Concomitant]
  8. ZITHROMAX [Concomitant]
     Dates: start: 20041101
  9. LIPITOR [Concomitant]
     Dates: end: 20040701
  10. TRICOR [Concomitant]
     Dates: end: 20040701
  11. ZIAC [Concomitant]
     Dates: end: 20040701

REACTIONS (8)
  - CARDIAC MURMUR [None]
  - CARDIOMEGALY [None]
  - CYANOSIS [None]
  - DRUG EXPOSURE DURING PREGNANCY [None]
  - LEFT VENTRICULAR HYPERTROPHY [None]
  - PREMATURE BABY [None]
  - SKIN DISCOLOURATION [None]
  - TRICUSPID VALVE INCOMPETENCE [None]
